FAERS Safety Report 5814457-2 (Version None)
Quarter: 2008Q3

REPORT INFORMATION
  Report Type: 
  Country: None (occurrence: None)
  Receive Date: 20080718
  Receipt Date: 20080714
  Transmission Date: 20090109
  Serious: Yes (Life-Threatening, Hospitalization, Disabling, Other)
  Sender: FDA-Public Use
  Company Number: DE-BRISTOL-MYERS SQUIBB COMPANY-14212195

PATIENT
  Age: 75 Year
  Sex: Female
  Weight: 73 kg

DRUGS (6)
  1. GLUCOPHAGE [Suspect]
     Indication: TYPE 2 DIABETES MELLITUS
     Route: 048
  2. GLIBENCLAMIDE [Concomitant]
     Indication: TYPE 2 DIABETES MELLITUS
     Route: 048
  3. RAMIPRIL [Concomitant]
     Indication: HYPERTONIA
  4. BISOPROLOL FUMARATE [Concomitant]
     Indication: HYPERTONIA
  5. CLOPIDOGREL BISULFATE [Concomitant]
     Indication: CORONARY ARTERY DISEASE
  6. HYDROCHLOROTHIAZIDE [Concomitant]
     Indication: CORONARY ARTERY DISEASE

REACTIONS (3)
  - ACUTE PRERENAL FAILURE [None]
  - GASTROENTERITIS [None]
  - LACTIC ACIDOSIS [None]
